FAERS Safety Report 7983617-7 (Version None)
Quarter: 2011Q4

REPORT INFORMATION
  Report Type: 
  Country: None (occurrence: None)
  Receive Date: 20111215
  Receipt Date: 20111208
  Transmission Date: 20120403
  Serious: Yes (Hospitalization, Other)
  Sender: FDA-Public Use
  Company Number: PHHY2011VE107858

PATIENT
  Sex: Female

DRUGS (3)
  1. ZOLEDRONOC ACID [Suspect]
     Dosage: 5 MG, UNK
     Route: 042
     Dates: start: 20110901
  2. ZOLEDRONOC ACID [Suspect]
     Indication: OSTEOPOROSIS
     Dosage: 5 MG, UNK
     Route: 042
     Dates: start: 20100801
  3. METICORTEN [Concomitant]
     Dosage: 30 MG, QD IN THE MORNING
     Dates: start: 20040101

REACTIONS (3)
  - PNEUMONIA [None]
  - IMMUNODEFICIENCY [None]
  - ASTHMATIC CRISIS [None]
